FAERS Safety Report 8457312-4 (Version None)
Quarter: 2012Q2

REPORT INFORMATION
  Report Type: 
  Country: None (occurrence: None)
  Receive Date: 20120621
  Receipt Date: 20120614
  Transmission Date: 20120825
  Serious: Yes (Other)
  Sender: FDA-Public Use
  Company Number: US-PFIZER INC-2012098643

PATIENT
  Sex: Female
  Weight: 63.492 kg

DRUGS (5)
  1. EFFEXOR [Suspect]
     Indication: DEPRESSION
     Dosage: UNK
     Route: 048
  2. EFFEXOR XR [Suspect]
     Dosage: UNK
  3. EFFEXOR [Suspect]
     Dosage: 225 MG, 2X/DAY
     Route: 048
     Dates: start: 20120101, end: 20120401
  4. SAVELLA [Suspect]
     Indication: DEPRESSION
     Dosage: UNK
  5. PRISTIQ [Suspect]
     Indication: DEPRESSION
     Dosage: 150 MG, DAILY
     Route: 048

REACTIONS (8)
  - DRUG DEPENDENCE [None]
  - MALAISE [None]
  - DRUG INEFFECTIVE [None]
  - DRUG INTOLERANCE [None]
  - NAUSEA [None]
  - WITHDRAWAL SYNDROME [None]
  - VOMITING [None]
  - DIZZINESS [None]
